FAERS Safety Report 11495301 (Version 1)
Quarter: 2015Q3

REPORT INFORMATION
  Report Type: Spontaneous
  Country: None (occurrence: US)
  Receive Date: 20150911
  Receipt Date: 20150911
  Transmission Date: 20151125
  Serious: No
  Sender: FDA-Public Use
  Company Number: US-MERZ NORTH AMERICA, INC.-15MRZ-00478

PATIENT
  Sex: Male
  Weight: 85.35 kg

DRUGS (1)
  1. XEOMIN [Suspect]
     Active Substance: INCOBOTULINUMTOXINA
     Indication: PRODUCT USED FOR UNKNOWN INDICATION
     Dosage: 20-24 UNITS IN THE FOREHEAD?8-10  UNITS IN THE FOREHEAD

REACTIONS (1)
  - Drug ineffective [None]
